FAERS Safety Report 5977316-0 (Version None)
Quarter: 2008Q4

REPORT INFORMATION
  Report Type: 
  Country: None (occurrence: None)
  Receive Date: 20081203
  Receipt Date: 20081119
  Transmission Date: 20090506
  Serious: Yes (Hospitalization, Other)
  Sender: FDA-Public Use
  Company Number: PHHY2008JP22589

PATIENT
  Sex: Female

DRUGS (3)
  1. VOLTAREN [Suspect]
     Indication: PYREXIA
     Dosage: 75 MG, QD
     Route: 054
     Dates: start: 20010417, end: 20010420
  2. VOLTAREN [Suspect]
     Dosage: UNK
     Route: 048
     Dates: start: 20010401, end: 20010401
  3. SULPERAZON [Suspect]
     Indication: INFECTION
     Dosage: 1 G, BID
     Route: 042
     Dates: start: 20080417, end: 20080420

REACTIONS (14)
  - CONJUNCTIVITIS [None]
  - DYSURIA [None]
  - EYE PAIN [None]
  - EYELID OEDEMA [None]
  - HAEMATURIA [None]
  - INFECTION [None]
  - INFLUENZA [None]
  - OCULAR HYPERAEMIA [None]
  - OCULOMUCOCUTANEOUS SYNDROME [None]
  - ORAL HERPES [None]
  - ORAL PAIN [None]
  - PYREXIA [None]
  - RASH [None]
  - STEVENS-JOHNSON SYNDROME [None]
